FAERS Safety Report 10110380 (Version 1)
Quarter: 2014Q2

REPORT INFORMATION
  Report Type: Spontaneous
  Country: US (occurrence: US)
  Receive Date: 20140425
  Receipt Date: 20140425
  Transmission Date: 20141212
  Serious: No
  Sender: FDA-Public Use
  Company Number: US-009507513-1404USA013202

PATIENT
  Sex: Male

DRUGS (2)
  1. LOTRIMIN AF [Suspect]
     Indication: TINEA PEDIS
     Dosage: UNK, UNKNOWN
     Route: 061
  2. LOTRIMIN AF [Suspect]
     Indication: TINEA CRURIS

REACTIONS (2)
  - Hypersensitivity [Unknown]
  - Drug effect incomplete [Unknown]
